FAERS Safety Report 7131337-3 (Version None)
Quarter: 2010Q4

REPORT INFORMATION
  Report Type: 
  Country: None (occurrence: None)
  Receive Date: 20101201
  Receipt Date: 20101122
  Transmission Date: 20110411
  Serious: Yes (Other)
  Sender: FDA-Public Use
  Company Number: BE-ROCHE-737664

PATIENT
  Sex: Female
  Weight: 69 kg

DRUGS (3)
  1. AVASTIN [Suspect]
     Route: 042
     Dates: start: 20100924
  2. TAXOL [Suspect]
     Route: 042
     Dates: start: 20100924
  3. MEDROL [Concomitant]
     Indication: PREMEDICATION
     Route: 048

REACTIONS (3)
  - ARTHRITIS [None]
  - HYPERTENSION [None]
  - PROTEINURIA [None]
